FAERS Safety Report 11797194 (Version 1)
Quarter: 2015Q4

REPORT INFORMATION
  Report Type: Spontaneous
  Country: DE (occurrence: DE)
  Receive Date: 20151203
  Receipt Date: 20151203
  Transmission Date: 20160305
  Serious: Yes (Hospitalization, Other)
  Sender: FDA-Public Use
  Company Number: DE-PFIZER INC-2015413058

PATIENT
  Sex: Male
  Weight: 3.18 kg

DRUGS (8)
  1. IBUPROFEN. [Concomitant]
     Active Substance: IBUPROFEN
     Indication: HEADACHE
     Dosage: 400 MG, 1X/DAY, AS NEEDED, 0-12.5 GESTATIONAL WEEK
     Route: 064
  2. PERFALGAN [Concomitant]
     Active Substance: ACETAMINOPHEN
     Indication: NEPHROLITHIASIS
     Dosage: UNK, 27.6 - 28 GESTATIONAL WEEK
     Route: 064
     Dates: start: 20150514, end: 20150515
  3. MEPTID [Concomitant]
     Active Substance: MEPTAZINOL HYDROCHLORIDE
     Indication: NEPHROLITHIASIS
     Dosage: UNK, 27.6 - 28 GESTATIONAL WEEK
     Route: 064
     Dates: start: 20150514, end: 20150515
  4. VENLAFAXINE HCL [Suspect]
     Active Substance: VENLAFAXINE HYDROCHLORIDE
     Dosage: 75 MG/DAY
     Route: 064
     Dates: end: 20150726
  5. EUTHYROX [Concomitant]
     Active Substance: LEVOTHYROXINE SODIUM
     Indication: HYPOTHYROIDISM
     Dosage: 100 UG, 1X/DAY, 0-38.2 GESTATIONAL WEEK
     Route: 064
     Dates: start: 20141031, end: 20150726
  6. BUSCOPAN [Concomitant]
     Active Substance: BUTYLSCOPOLAMINE BROMIDE
     Indication: NEPHROLITHIASIS
     Dosage: UNK, 27.6 - 28 GESTATIONAL WEEK
     Route: 064
     Dates: start: 20150514, end: 20150515
  7. VENLAFAXINE HCL [Suspect]
     Active Substance: VENLAFAXINE HYDROCHLORIDE
     Indication: DEPRESSION
     Dosage: 37.5 MG/DAY
     Route: 064
     Dates: start: 20141031
  8. FOLIO FORTE [Concomitant]
     Active Substance: FOLIC ACID\VITAMINS
     Indication: PROPHYLAXIS OF NEURAL TUBE DEFECT
     Dosage: 0.8 MG, DAILY, 0-38.2 GESTATIONAL WEEK
     Route: 064
     Dates: start: 20141031, end: 20150726

REACTIONS (3)
  - Bradycardia neonatal [Recovered/Resolved]
  - Maternal exposure during pregnancy [Unknown]
  - Oxygen saturation decreased [Recovered/Resolved]

NARRATIVE: CASE EVENT DATE: 20150726
